FAERS Safety Report 12375869 (Version 1)
Quarter: 2016Q2

REPORT INFORMATION
  Report Type: Spontaneous
  Country: BR (occurrence: BR)
  Receive Date: 20160517
  Receipt Date: 20160517
  Transmission Date: 20160815
  Serious: Yes (Other)
  Sender: FDA-Public Use
  Company Number: BR-GLAXOSMITHKLINE-BR2016GSK068637

PATIENT
  Sex: Female

DRUGS (4)
  1. SERETIDE [Suspect]
     Active Substance: FLUTICASONE PROPIONATE\SALMETEROL XINAFOATE
     Indication: LUNG INFECTION
     Dosage: UNK
  2. MONTELAIR [Suspect]
     Active Substance: MONTELUKAST SODIUM
     Indication: LUNG INFECTION
     Dosage: UNK
  3. RELVAR ELLIPTA [Suspect]
     Active Substance: FLUTICASONE FUROATE\VILANTEROL TRIFENATATE
     Indication: PRODUCT USED FOR UNKNOWN INDICATION
     Dosage: UNK
     Dates: start: 20160311
  4. RESPIRATUS [Suspect]
     Active Substance: HEDERA HELIX LEAF
     Indication: LUNG INFECTION
     Dosage: UNK

REACTIONS (6)
  - Apparent death [Unknown]
  - Dyspnoea [Unknown]
  - Ill-defined disorder [Unknown]
  - Product use issue [Unknown]
  - Back pain [Unknown]
  - Dry throat [Unknown]
